FAERS Safety Report 23593887 (Version 1)
Quarter: 2024Q1

REPORT INFORMATION
  Report Type: Spontaneous
  Country: CN (occurrence: CN)
  Receive Date: 20240305
  Receipt Date: 20240305
  Transmission Date: 20240410
  Serious: Yes (Hospitalization, Other)
  Sender: FDA-Public Use
  Company Number: CN-SENTISSAG-2024SAGLIT-00001

PATIENT
  Age: 42 Year
  Sex: Male
  Weight: 65 kg

DRUGS (6)
  1. LIDOCAINE HYDROCHLORIDE [Suspect]
     Active Substance: LIDOCAINE HYDROCHLORIDE
     Indication: Epidural anaesthesia
     Dosage: COTTON PLEDGETS
  2. CARBAMAZEPINE [Concomitant]
     Active Substance: CARBAMAZEPINE
     Indication: Generalised tonic-clonic seizure
  3. PROPOFOL [Concomitant]
     Active Substance: PROPOFOL
     Dosage: UG/ML
  4. PROPOFOL [Concomitant]
     Active Substance: PROPOFOL
     Dosage: MG/ML
  5. REMIFENTANIL [Concomitant]
     Active Substance: REMIFENTANIL
     Indication: Bispectral index
  6. REMIFENTANIL [Concomitant]
     Active Substance: REMIFENTANIL

REACTIONS (3)
  - Apnoea [Recovered/Resolved]
  - Pupillary reflex impaired [Recovered/Resolved]
  - Loss of consciousness [Recovered/Resolved]
